FAERS Safety Report 18232746 (Version 1)
Quarter: 2020Q3

REPORT INFORMATION
  Report Type: Spontaneous
  Country: CH (occurrence: CH)
  Receive Date: 20200904
  Receipt Date: 20200904
  Transmission Date: 20201103
  Serious: Yes (Other)
  Sender: FDA-Public Use
  Company Number: CH-BRACCO-2020CH03581

PATIENT

DRUGS (3)
  1. IOPAMIRO [Suspect]
     Active Substance: IOPAMIDOL
  2. CELESTONE [Suspect]
     Active Substance: BETAMETHASONE
  3. XYLONEURAL [Suspect]
     Active Substance: LIDOCAINE HYDROCHLORIDE
     Indication: SPINAL ANAESTHESIA
     Dosage: 2 DF

REACTIONS (4)
  - Asthenia [Unknown]
  - Syncope [Recovering/Resolving]
  - Hypotonia [Unknown]
  - Dysarthria [Unknown]
